FAERS Safety Report 5557714-X (Version None)
Quarter: 2007Q4

REPORT INFORMATION
  Report Type: 
  Country: None (occurrence: None)
  Receive Date: 20071214
  Receipt Date: 20071207
  Transmission Date: 20080405
  Serious: Yes (Hospitalization)
  Sender: FDA-Public Use
  Company Number: PHBS2007CH20596

PATIENT
  Age: 61 Year
  Sex: Male

DRUGS (6)
  1. DICLOFENAC SODIUM [Suspect]
     Route: 065
     Dates: start: 20070314, end: 20070321
  2. ZEFFIX [Concomitant]
     Dosage: 100 MG/DAY
  3. HEPSERA [Concomitant]
     Dosage: 1 DF/DAY
  4. INDERAL [Concomitant]
     Dosage: 80 MG/DAY
  5. LANTUS [Concomitant]
     Dosage: UNK, UNK
     Route: 058
  6. HUMALOG [Concomitant]
     Route: 058

REACTIONS (4)
  - ASCITES [None]
  - CELLULITIS [None]
  - STAPHYLOCOCCAL ABSCESS [None]
  - SYNOVIAL RUPTURE [None]
